FAERS Safety Report 9565294 (Version 2)
Quarter: 2013Q4

REPORT INFORMATION
  Report Type: Spontaneous
  Country: US (occurrence: US)
  Receive Date: 20130930
  Receipt Date: 20131015
  Transmission Date: 20140711
  Serious: Yes (Other)
  Sender: FDA-Public Use
  Company Number: US-TEVA-435036USA

PATIENT
  Age: 36 Year
  Sex: Female
  Weight: 62.2 kg

DRUGS (4)
  1. PARAGARD 380A [Suspect]
     Indication: CONTRACEPTION
     Route: 015
     Dates: start: 20130701, end: 20130925
  2. SPIRONOLACTONE [Concomitant]
     Indication: POLYCYSTIC OVARIES
  3. METFORMIN [Concomitant]
     Indication: POLYCYSTIC OVARIES
  4. MULTIVITAMINS [Concomitant]
     Indication: SUPPLEMENTATION THERAPY

REACTIONS (3)
  - Vaginal haemorrhage [Recovered/Resolved]
  - Dysmenorrhoea [Not Recovered/Not Resolved]
  - Pain [Recovered/Resolved]
